FAERS Safety Report 6635409-9 (Version None)
Quarter: 2010Q1

REPORT INFORMATION
  Report Type: 
  Country: None (occurrence: None)
  Receive Date: 20100315
  Receipt Date: 20090317
  Transmission Date: 20100710
  Serious: No
  Sender: FDA-Public Use
  Company Number: US-ABBOTT-09P-163-0563791-00

PATIENT
  Sex: Female

DRUGS (5)
  1. DEPAKOTE [Suspect]
     Indication: BIPOLAR DISORDER
     Route: 048
     Dates: end: 20020101
  2. ABILIFY [Suspect]
     Indication: BIPOLAR DISORDER
     Route: 048
     Dates: start: 20020101, end: 20020101
  3. WELLBUTRIN [Concomitant]
     Indication: DRUG USE FOR UNKNOWN INDICATION
  4. LITHIUM [Concomitant]
     Indication: BIPOLAR DISORDER
  5. TRILEPTAL [Concomitant]
     Indication: BIPOLAR DISORDER
     Dates: start: 20020101

REACTIONS (4)
  - ATAXIA [None]
  - BALANCE DISORDER [None]
  - ESSENTIAL TREMOR [None]
  - TREMOR [None]
